FAERS Safety Report 5034935-6 (Version None)
Quarter: 2006Q2

REPORT INFORMATION
  Report Type: 
  Country: None (occurrence: None)
  Receive Date: 20060519
  Receipt Date: 20050609
  Transmission Date: 20061013
  Serious: Yes (Hospitalization)
  Sender: FDA-Public Use
  Company Number: 2005PL000050

PATIENT
  Age: 79 Year
  Sex: Female
  Weight: 44.44 kg

DRUGS (8)
  1. IMURAN [Suspect]
     Indication: AUTOIMMUNE DISORDER
     Dosage: PO
     Route: 048
     Dates: start: 20030801
  2. TRACLEER [Suspect]
     Indication: PULMONARY HYPERTENSION
     Dosage: SEE IMAGE
     Dates: start: 20031002, end: 20031104
  3. TRACLEER [Suspect]
     Indication: PULMONARY HYPERTENSION
     Dosage: SEE IMAGE
     Dates: start: 20031105, end: 20050301
  4. TRACLEER [Suspect]
     Indication: PULMONARY HYPERTENSION
     Dosage: SEE IMAGE
     Dates: start: 20050503
  5. ACETAMINOPHEN [Concomitant]
  6. MULTIVITAMIN [Concomitant]
  7. GABAPENTIN [Concomitant]
  8. CALCIUM GLUCONATE [Concomitant]

REACTIONS (1)
  - PANCREATITIS ACUTE [None]
